FAERS Safety Report 4600076-2 (Version None)
Quarter: 2005Q1

REPORT INFORMATION
  Report Type: 
  Country: None (occurrence: None)
  Receive Date: 20050307
  Receipt Date: 20050228
  Transmission Date: 20050727
  Serious: Yes (Death)
  Sender: FDA-Public Use
  Company Number: US-BRISTOL-MYERS SQUIBB COMPANY-12883849

PATIENT
  Age: 75 Year
  Sex: Male

DRUGS (1)
  1. ERBITUX [Suspect]
     Dosage: 30-JUN-2004 765 THEN 425/28-JUL-2004 423 WEEKLY/10-DEC-2004 408 WEEKLY

REACTIONS (1)
  - DEATH [None]
